FAERS Safety Report 10159574 (Version 1)
Quarter: 2014Q2

REPORT INFORMATION
  Report Type: Spontaneous
  Country: US (occurrence: US)
  Receive Date: 20140508
  Receipt Date: 20140508
  Transmission Date: 20141212
  Serious: No
  Sender: FDA-Public Use
  Company Number: US-009507513-1404USA015614

PATIENT
  Age: 10 Year
  Sex: Male

DRUGS (3)
  1. CLARITIN CHEWABLE TABLETS [Suspect]
     Indication: OCULAR HYPERAEMIA
     Dosage: 10 MG, UNKNOWN
     Route: 048
     Dates: start: 2013
  2. CLARITIN CHEWABLE TABLETS [Suspect]
     Indication: EYE PRURITUS
  3. CLARITIN CHEWABLE TABLETS [Suspect]
     Indication: EYE IRRITATION

REACTIONS (1)
  - Hallucination [Unknown]
